FAERS Safety Report 16328643 (Version 2)
Quarter: 2019Q2

REPORT INFORMATION
  Report Type: Spontaneous
  Country: RO (occurrence: RO)
  Receive Date: 20190518
  Receipt Date: 20190524
  Transmission Date: 20190711
  Serious: Yes (Hospitalization, Other)
  Sender: FDA-Public Use
  Company Number: PHHY2019RO110042

PATIENT
  Age: 26 Day
  Sex: Male

DRUGS (4)
  1. PHYTOMENADIONE [Suspect]
     Active Substance: PHYTONADIONE
     Indication: PROPHYLAXIS
     Dosage: UNK
     Route: 065
  2. PARACETAMOL [Suspect]
     Active Substance: ACETAMINOPHEN
     Indication: BODY TEMPERATURE INCREASED
     Dosage: 1.5 ML, UNK
     Route: 065
  3. BERBERINE [Suspect]
     Active Substance: BERBERINE
     Indication: PROPHYLAXIS
     Route: 065
  4. PHYTOMENADIONE [Suspect]
     Active Substance: PHYTONADIONE
     Indication: HAEMORRHAGE PROPHYLAXIS

REACTIONS (6)
  - Haemolysis [Recovering/Resolving]
  - Jaundice neonatal [Unknown]
  - Haemolytic anaemia [Unknown]
  - Off label use [Unknown]
  - Kernicterus [Recovering/Resolving]
  - Product use issue [Unknown]
